FAERS Safety Report 4351472-2 (Version None)
Quarter: 2004Q2

REPORT INFORMATION
  Report Type: 
  Country: None (occurrence: None)
  Receive Date: 20040428
  Receipt Date: 20040426
  Transmission Date: 20050107
  Serious: Yes (Hospitalization)
  Sender: FDA-Public Use
  Company Number: US-SHR-03-011525

PATIENT
  Age: 57 Year
  Sex: Female

DRUGS (1)
  1. BETASERON [Suspect]
     Indication: MULTIPLE SCLEROSIS
     Dosage: 8 MIU, EVERY 2D, SUBCUTANEOUS
     Route: 058
     Dates: start: 20020801

REACTIONS (5)
  - BLOOD THYROID STIMULATING HORMONE INCREASED [None]
  - FEELING ABNORMAL [None]
  - FEELING DRUNK [None]
  - POST PROCEDURAL COMPLICATION [None]
  - THYROID DISORDER [None]
